FAERS Safety Report 19007780 (Version 2)
Quarter: 2021Q2

REPORT INFORMATION
  Report Type: Spontaneous
  Country: US (occurrence: US)
  Receive Date: 20210315
  Receipt Date: 20210412
  Transmission Date: 20210717
  Serious: No
  Sender: FDA-Public Use
  Company Number: US-MYLANLABS-2021M1014121

PATIENT
  Sex: Female

DRUGS (1)
  1. ESTRADIOL TRANSDERMAL SYSTEM [Suspect]
     Active Substance: ESTRADIOL
     Indication: PRODUCT USED FOR UNKNOWN INDICATION
     Dosage: 0.1 MILLIGRAM, QD (ONCE?WEEKLY)
     Route: 062
     Dates: start: 20210225, end: 2021

REACTIONS (3)
  - Wrong technique in device usage process [Recovered/Resolved]
  - Product quality issue [Recovered/Resolved]
  - Product adhesion issue [Recovered/Resolved]

NARRATIVE: CASE EVENT DATE: 2021
